FAERS Safety Report 7519863-6 (Version None)
Quarter: 2011Q2

REPORT INFORMATION
  Report Type: 
  Country: None (occurrence: None)
  Receive Date: 20110602
  Receipt Date: 20110526
  Transmission Date: 20111010
  Serious: Yes (Life-Threatening, Other)
  Sender: FDA-Public Use
  Company Number: US-ROXANE LABORATORIES, INC.-2011-RO-00742RO

PATIENT
  Age: 62 Year
  Sex: Female
  Weight: 135 kg

DRUGS (8)
  1. ASPIRIN [Suspect]
  2. HEPARIN [Suspect]
     Indication: THROMBOSIS PROPHYLAXIS
     Route: 058
  3. SUCCINYLCHOLINE CHLORIDE [Suspect]
  4. ONDANSETRON [Suspect]
     Indication: PROPHYLAXIS OF NAUSEA AND VOMITING
  5. ATORVASTATIN [Suspect]
     Dosage: 20 MG
  6. NORTRIPTYLINE HCL [Suspect]
     Dosage: 25 MG
  7. ESCITALOPRAM [Suspect]
     Dosage: 10 MG
  8. TOPIRAMATE [Suspect]
     Dosage: 25 MG

REACTIONS (2)
  - LONG QT SYNDROME [None]
  - CARDIAC ARREST [None]
